FAERS Safety Report 8803352 (Version 2)
Quarter: 2012Q4

REPORT INFORMATION
  Report Type: Report from Study
  Country: CA (occurrence: CA)
  Receive Date: 20120924
  Receipt Date: 20121123
  Transmission Date: 20130627
  Serious: Yes (Hospitalization)
  Sender: FDA-Public Use
  Company Number: CA-JNJFOC-20120906424

PATIENT
  Age: 16 Year
  Sex: Male
  Weight: 60.9 kg

DRUGS (2)
  1. REMICADE [Suspect]
     Indication: COLITIS ULCERATIVE
     Dosage: 0-2-6; 2 infusions till date
     Route: 042
     Dates: start: 20120731, end: 20121115
  2. PREDNISONE [Concomitant]
     Route: 048
     Dates: start: 20120705

REACTIONS (3)
  - Thrombosis [Unknown]
  - Haematochezia [Unknown]
  - Adverse event [Unknown]
